FAERS Safety Report 18813875 (Version 1)
Quarter: 2021Q1

REPORT INFORMATION
  Report Type: Spontaneous
  Country: US (occurrence: US)
  Receive Date: 20210201
  Receipt Date: 20210201
  Transmission Date: 20210419
  Serious: No
  Sender: FDA-Public Use
  Company Number: US-TAKEDA-2021TUS005325

PATIENT
  Sex: Female
  Weight: 45 kg

DRUGS (2)
  1. ROZEREM [Suspect]
     Active Substance: RAMELTEON
     Indication: INITIAL INSOMNIA
     Dosage: UNK
     Route: 065
  2. LEXAPRO [Concomitant]
     Active Substance: ESCITALOPRAM OXALATE
     Indication: GENERALISED ANXIETY DISORDER
     Dosage: 5 MILLIGRAM, QD
     Route: 065

REACTIONS (2)
  - No adverse event [Unknown]
  - Product prescribing error [Unknown]
